FAERS Safety Report 5878141-1 (Version None)
Quarter: 2008Q3

REPORT INFORMATION
  Report Type: 
  Country: None (occurrence: None)
  Receive Date: 20080911
  Receipt Date: 20080905
  Transmission Date: 20090109
  Serious: Yes (Other)
  Sender: FDA-Public Use
  Company Number: US-ALLERGAN-0811106US

PATIENT
  Sex: Male

DRUGS (2)
  1. BOTOX [Suspect]
     Indication: HYPERHIDROSIS
     Dosage: 200 UNITS, SINGLE
     Route: 023
     Dates: start: 20080904, end: 20080904
  2. BOTOX [Suspect]

REACTIONS (2)
  - SYNCOPE [None]
  - WRONG TECHNIQUE IN DRUG USAGE PROCESS [None]
